FAERS Safety Report 14850515 (Version 1)
Quarter: 2018Q2

REPORT INFORMATION
  Report Type: Spontaneous
  Country: US (occurrence: US)
  Receive Date: 20180505
  Receipt Date: 20180505
  Transmission Date: 20180711
  Serious: No
  Sender: FDA-Public Use
  Company Number: PHEH2018US016399

PATIENT
  Sex: Female

DRUGS (4)
  1. LORAZEPAM SANDOZ [Suspect]
     Active Substance: LORAZEPAM
     Indication: PRODUCT USED FOR UNKNOWN INDICATION
     Dosage: 1 MG, BID
     Route: 065
  2. LORAZEPAM MYLAN [Suspect]
     Active Substance: LORAZEPAM
     Dosage: 0.5 DF, UNK
     Route: 065
  3. LORAZEPAM MYLAN [Suspect]
     Active Substance: LORAZEPAM
     Indication: PRODUCT USED FOR UNKNOWN INDICATION
     Dosage: UNK
     Route: 065
  4. LORAZEPAM SANDOZ [Suspect]
     Active Substance: LORAZEPAM
     Dosage: 0.5 DF, UNK
     Route: 065

REACTIONS (2)
  - Drug ineffective [Unknown]
  - Dyspepsia [Unknown]
